FAERS Safety Report 8833699 (Version 1)
Quarter: 2012Q4

REPORT INFORMATION
  Report Type: 
  Country: US (occurrence: US)
  Receive Date: 20121010
  Receipt Date: 20121010
  Transmission Date: 20130627
  Serious: Yes (Death)
  Sender: FDA-Public Use
  Company Number: US-INCYTE CORPORATION-2012IN001960

PATIENT
  Age: 83 Year
  Sex: Male

DRUGS (1)
  1. JAKAFI [Suspect]
     Dosage: 20 mg, bid
     Route: 048
     Dates: start: 201201, end: 201204

REACTIONS (1)
  - Death [Fatal]
